FAERS Safety Report 12434458 (Version 2)
Quarter: 2017Q2

REPORT INFORMATION
  Report Type: Spontaneous
  Country: US (occurrence: US)
  Receive Date: 20160603
  Receipt Date: 20170601
  Transmission Date: 20170912
  Serious: No
  Sender: FDA-Public Use
  Company Number: US-OTSUKA-2016_004593

PATIENT
  Sex: Female

DRUGS (2)
  1. LASIX [Concomitant]
     Indication: PRODUCT USED FOR UNKNOWN INDICATION
     Dosage: LOW DOSE
     Route: 065
  2. SAMSCA [Suspect]
     Indication: INAPPROPRIATE ANTIDIURETIC HORMONE SECRETION
     Dosage: 60 MG, QD (2 TABLETS OF 30 MG EVERY MORNING)
     Route: 048

REACTIONS (2)
  - Incorrect drug administration duration [Unknown]
  - Off label use [Unknown]
